FAERS Safety Report 5406797-6 (Version None)
Quarter: 2007Q3

REPORT INFORMATION
  Report Type: 
  Country: None (occurrence: None)
  Receive Date: 20070807
  Receipt Date: 20070801
  Transmission Date: 20080115
  Serious: Yes (Hospitalization)
  Sender: FDA-Public Use
  Company Number: US-BAYER-200711885BCC

PATIENT
  Age: 46 Year
  Sex: Female
  Weight: 68 kg

DRUGS (5)
  1. ASPIRIN [Suspect]
     Indication: BACK PAIN
     Dosage: TOTAL DAILY DOSE: 1000 MG  UNIT DOSE: 500 MG
     Route: 048
     Dates: start: 20070525
  2. FLONASE [Concomitant]
  3. LISINOPRIL AND HYDROCHLOROTHIAZIDE [Concomitant]
     Route: 048
  4. WATER PILL [Concomitant]
  5. HIGH BLOOD PRESSURE PILL [Concomitant]

REACTIONS (7)
  - ANAPHYLACTIC SHOCK [None]
  - ANXIETY [None]
  - DYSPHONIA [None]
  - LOSS OF CONSCIOUSNESS [None]
  - POLLAKIURIA [None]
  - RESPIRATORY ARREST [None]
  - WHEEZING [None]
